FAERS Safety Report 11648684 (Version 1)
Quarter: 2015Q4

REPORT INFORMATION
  Report Type: Spontaneous
  Country: GB (occurrence: GB)
  Receive Date: 20151021
  Receipt Date: 20151021
  Transmission Date: 20160304
  Serious: Yes (Other)
  Sender: FDA-Public Use
  Company Number: GB-TEVA-601284ACC

PATIENT
  Age: 39 Year
  Sex: Female
  Weight: 80 kg

DRUGS (7)
  1. MEDROXYPROGESTERONE [Concomitant]
     Active Substance: MEDROXYPROGESTERONE
     Indication: AMENORRHOEA
     Dosage: 3 DOSAGE FORMS DAILY; ONGOING. DAILY DOSE: 3 DOSAGE FORMS
     Route: 048
  2. RANITIDINE [Concomitant]
     Active Substance: RANITIDINE\RANITIDINE HYDROCHLORIDE
     Indication: GASTROOESOPHAGEAL REFLUX DISEASE
     Dosage: 300 MILLIGRAM DAILY; ONGOING. DAILY DOSE: 300 MG
     Route: 048
  3. COCODAMOL [Concomitant]
     Active Substance: ACETAMINOPHEN\CODEINE PHOSPHATE
     Indication: PAIN
     Dosage: 4 DOSAGE FORMS DAILY; ONGOING. DAILY DOSE: 4 DOSAGE FORMS
     Route: 048
  4. VACLOVIR [Concomitant]
     Indication: HERPES VIRUS INFECTION
     Dosage: 1-4 DOSAGE FORMS
     Route: 061
  5. NAPROXEN. [Concomitant]
     Active Substance: NAPROXEN
     Dosage: 500 MILLIGRAM DAILY; ONGOING. DAILY DOSE: 500 MG
  6. BACLOFEN. [Suspect]
     Active Substance: BACLOFEN
     Indication: MUSCLE SPASMS
     Dosage: 30 MILLIGRAM DAILY;
     Route: 048
     Dates: start: 201504, end: 20150928
  7. DULOXETINE. [Concomitant]
     Active Substance: DULOXETINE
     Indication: PAIN
     Dosage: 60 MILLIGRAM DAILY; ONGOING. DAILY DOSE: 60 MG
     Route: 048

REACTIONS (1)
  - Mouth ulceration [Not Recovered/Not Resolved]
